FAERS Safety Report 10508692 (Version 1)
Quarter: 2014Q4

REPORT INFORMATION
  Report Type: Spontaneous
  Country: FR (occurrence: FR)
  Receive Date: 20141009
  Receipt Date: 20141009
  Transmission Date: 20150528
  Serious: Yes (Life-Threatening, Hospitalization)
  Sender: FDA-Public Use
  Company Number: FR-ASTRAZENECA-2014SE75016

PATIENT
  Age: 25411 Day
  Sex: Male

DRUGS (19)
  1. ESIDREX [Suspect]
     Active Substance: HYDROCHLOROTHIAZIDE
     Route: 048
     Dates: start: 20130323, end: 20130507
  2. DEXAMETHASONE. [Concomitant]
     Active Substance: DEXAMETHASONE
  3. TOPALGIC [Concomitant]
     Active Substance: TRAMADOL
  4. ESIDREX [Suspect]
     Active Substance: HYDROCHLOROTHIAZIDE
     Route: 048
     Dates: start: 20130517, end: 20130607
  5. ENBREL [Concomitant]
     Active Substance: ETANERCEPT
     Dosage: EVERY 15 DAYS FOR 4 YEARS
     Dates: end: 20130430
  6. CONTRAMAL [Concomitant]
     Active Substance: TRAMADOL HYDROCHLORIDE
  7. NORSET [Suspect]
     Active Substance: MIRTAZAPINE
     Route: 048
     Dates: end: 20130521
  8. PERINDOPRIL ARROW [Suspect]
     Active Substance: PERINDOPRIL
     Route: 048
     Dates: start: 20130323, end: 20130507
  9. ISOPTIN [Concomitant]
     Active Substance: VERAPAMIL HYDROCHLORIDE
  10. ZOPICLONE [Concomitant]
     Active Substance: ZOPICLONE
  11. FORADIL [Concomitant]
     Active Substance: FORMOTEROL FUMARATE
  12. SEROPLEX [Concomitant]
     Active Substance: ESCITALOPRAM OXALATE
  13. INEXIUM [Suspect]
     Active Substance: ESOMEPRAZOLE
     Route: 048
     Dates: end: 20130522
  14. PERINDOPRIL ARROW [Suspect]
     Active Substance: PERINDOPRIL
     Route: 048
     Dates: start: 20130517, end: 20130522
  15. ENBREL [Concomitant]
     Active Substance: ETANERCEPT
     Dosage: EVERY 15 DAYS
     Dates: start: 20130614
  16. APRANAX [Concomitant]
     Active Substance: NAPROXEN
  17. EUPRESSYL [Concomitant]
     Active Substance: URAPIDIL
  18. FLIXOTIDE [Concomitant]
     Active Substance: FLUTICASONE PROPIONATE
  19. LOXEN [Concomitant]
     Active Substance: NICARDIPINE HYDROCHLORIDE

REACTIONS (5)
  - Depression [Unknown]
  - Suicide attempt [Unknown]
  - Agranulocytosis [Recovered/Resolved]
  - Hypotension [Recovered/Resolved]
  - Pyrexia [Recovered/Resolved]

NARRATIVE: CASE EVENT DATE: 201303
